FAERS Safety Report 6768443 (Version 24)
Quarter: 2014Q1

REPORT INFORMATION
  Report Type: Spontaneous
  Country: US (occurrence: US)
  Receive Date: 20080924
  Receipt Date: 20140319
  Transmission Date: 20141002
  Serious: Yes (Death, Other)
  Sender: FDA-Public Use
  Company Number: PHEH2008US08371

PATIENT
  Sex: Male
  Weight: 73.92 kg

DRUGS (39)
  1. AREDIA [Suspect]
     Dosage: 90 MG,
  2. ZOMETA [Suspect]
     Indication: PLASMA CELL MYELOMA
     Route: 042
     Dates: start: 20020903, end: 200701
  3. FENTANYL [Concomitant]
     Dosage: 125 UG, UNK
     Route: 042
  4. OXYCONTIN [Concomitant]
  5. OXYCODONE [Concomitant]
     Dosage: 40 MG, TID
  6. GABAPENTIN [Concomitant]
  7. NEXIUM [Concomitant]
  8. PERCOCET [Concomitant]
  9. ERYTHROMYCIN [Concomitant]
  10. EMLA [Concomitant]
  11. VIDAZA [Concomitant]
  12. NEURONTIN [Concomitant]
     Dosage: 300 MG, QHS
  13. ASPIRIN [Concomitant]
  14. LISINOPRIL [Concomitant]
  15. PLAVIX [Concomitant]
     Dosage: 75 MG, QD
  16. SIMVASTATIN [Concomitant]
     Dosage: 40 MG, QHS
  17. METOPROLOL SUCCINATE [Concomitant]
     Dosage: 50 MG, BID
  18. REVLIMID [Concomitant]
  19. ASPIRIN N [Concomitant]
     Dosage: 81 MG, QD
  20. PRILOSEC [Concomitant]
     Dosage: 20 MG, BID
  21. FAMOTIDINE [Concomitant]
  22. PROTONIX [Concomitant]
  23. CHLORHEXIDINE GLUCONATE [Concomitant]
  24. ZOFRAN [Concomitant]
  25. VIOXX [Concomitant]
  26. LORTAB [Concomitant]
  27. NEUPOGEN [Concomitant]
  28. MELPHALAN [Concomitant]
  29. VINCRISTINE [Concomitant]
  30. ADRIAMYCIN [Concomitant]
  31. DEXAMETHASONE [Concomitant]
  32. COUMADIN ^BOOTS^ [Concomitant]
  33. PERIDEX [Concomitant]
  34. AMARYL [Concomitant]
  35. STEROIDS NOS [Concomitant]
  36. DELTASONE [Concomitant]
  37. SULFAMETHOXAZOLE [Concomitant]
  38. CHEMOTHERAPEUTICS [Concomitant]
  39. THALIDOMIDE [Concomitant]

REACTIONS (151)
  - Acute myeloid leukaemia [Fatal]
  - Pneumonia [Fatal]
  - Osteonecrosis of jaw [Unknown]
  - Pain [Unknown]
  - Infection [Unknown]
  - Acetabulum fracture [Unknown]
  - Osteoarthritis [Unknown]
  - Osteomyelitis [Unknown]
  - Pain in jaw [Unknown]
  - Type 2 diabetes mellitus [Unknown]
  - Peroneal nerve palsy [Unknown]
  - Femur fracture [Unknown]
  - Muscle atrophy [Unknown]
  - Nervous system disorder [Unknown]
  - Sensory loss [Unknown]
  - Neoplasm malignant [Unknown]
  - Nausea [Unknown]
  - Vomiting [Unknown]
  - Dyspepsia [Unknown]
  - Weight decreased [Unknown]
  - Barrett^s oesophagus [Unknown]
  - Hiatus hernia [Unknown]
  - Gastrooesophageal reflux disease [Unknown]
  - Metaplasia [Unknown]
  - Arthritis [Unknown]
  - Loose tooth [Unknown]
  - Gastritis [Unknown]
  - Oesophagitis [Unknown]
  - Haemorrhoids [Unknown]
  - Oral candidiasis [Unknown]
  - Polydipsia [Unknown]
  - Polyuria [Unknown]
  - Bence Jones protein urine present [Unknown]
  - Metastases to bone [Unknown]
  - Pancytopenia [Unknown]
  - Hypoaesthesia [Unknown]
  - Abdominal distension [Unknown]
  - Abdominal pain [Unknown]
  - Liver function test abnormal [Unknown]
  - Ascites [Unknown]
  - Atelectasis [Unknown]
  - Arteriosclerosis coronary artery [Unknown]
  - Eyelid oedema [Unknown]
  - Erythema of eyelid [Unknown]
  - Impaired healing [Unknown]
  - Neutropenia [Unknown]
  - Anaemia [Unknown]
  - Thrombocytopenia [Unknown]
  - Myelodysplastic syndrome [Unknown]
  - Neuropathy peripheral [Unknown]
  - Lymphoedema [Unknown]
  - Coronary artery disease [Unknown]
  - Myocardial infarction [Unknown]
  - Dyspnoea [Unknown]
  - Dysphagia [Unknown]
  - Small intestinal obstruction [Unknown]
  - Respiratory distress [Unknown]
  - Cardiomegaly [Unknown]
  - Lung infiltration [Unknown]
  - Pulmonary oedema [Unknown]
  - Pleural effusion [Unknown]
  - Rib fracture [Unknown]
  - Gingival bleeding [Unknown]
  - Exposed bone in jaw [Unknown]
  - Petechiae [Unknown]
  - Bone lesion [Unknown]
  - Ventricular fibrillation [Unknown]
  - Chest pain [Unknown]
  - Electrocardiogram ST segment elevation [Unknown]
  - Electrocardiogram ST segment depression [Unknown]
  - Gastrointestinal haemorrhage [Unknown]
  - Haematocrit decreased [Recovering/Resolving]
  - Gastric ulcer [Recovering/Resolving]
  - Ischaemic cardiomyopathy [Unknown]
  - Hypoxic-ischaemic encephalopathy [Unknown]
  - Cardiac arrest [Unknown]
  - Ejection fraction decreased [Unknown]
  - Duodenitis [Unknown]
  - Hypotension [Unknown]
  - Drug hypersensitivity [Unknown]
  - Cellulitis [Unknown]
  - Fall [Unknown]
  - Pulpitis dental [Unknown]
  - Periodontitis [Unknown]
  - Tricuspid valve incompetence [Unknown]
  - Cardiac failure congestive [Unknown]
  - Angina unstable [Unknown]
  - Dysaesthesia [Unknown]
  - High density lipoprotein decreased [Unknown]
  - Influenza [Unknown]
  - Transient ischaemic attack [Unknown]
  - Proteinuria [Unknown]
  - Back injury [Unknown]
  - Hypercalcaemia [Unknown]
  - Spinal cord compression [Unknown]
  - Lower limb fracture [Unknown]
  - Dental caries [Unknown]
  - Abscess [Unknown]
  - Swelling [Unknown]
  - Osteoporosis [Unknown]
  - Pathological fracture [Unknown]
  - Hip fracture [Unknown]
  - Upper limb fracture [Unknown]
  - Tooth loss [Unknown]
  - Tooth fracture [Unknown]
  - Fatigue [Unknown]
  - Testicular mass [Unknown]
  - Joint injury [Unknown]
  - Arthritis bacterial [Unknown]
  - Rotator cuff syndrome [Unknown]
  - Scrotal oedema [Unknown]
  - Localised oedema [Unknown]
  - Oedema peripheral [Unknown]
  - Osteoradionecrosis [Unknown]
  - Nervousness [Unknown]
  - Confusional state [Unknown]
  - Diarrhoea [Unknown]
  - Panic attack [Unknown]
  - Lymphadenitis [Unknown]
  - Asthenia [Unknown]
  - Hypertension [Unknown]
  - Hyperlipidaemia [Unknown]
  - Pericardial effusion [Unknown]
  - Rib deformity [Unknown]
  - Anxiety [Unknown]
  - Ecchymosis [Unknown]
  - Hepatomegaly [Unknown]
  - Delirium [Unknown]
  - Agitation [Unknown]
  - Hypokalaemia [Unknown]
  - Impaired gastric emptying [Unknown]
  - Hyperbilirubinaemia [Unknown]
  - Hepatic failure [Unknown]
  - Ataxia [Unknown]
  - Coagulopathy [Unknown]
  - Tachycardia [Unknown]
  - Osteosclerosis [Unknown]
  - Lymphopenia [Unknown]
  - Spinal deformity [Unknown]
  - Intervertebral disc space narrowing [Unknown]
  - Spinal compression fracture [Unknown]
  - Osteolysis [Unknown]
  - Joint effusion [Unknown]
  - Osteopenia [Unknown]
  - Spermatocele [Unknown]
  - Skeletal injury [Unknown]
  - Aortic calcification [Unknown]
  - Aortic arteriosclerosis [Unknown]
  - Intervertebral disc degeneration [Unknown]
  - Emphysema [Unknown]
  - Pubis fracture [Unknown]
